FAERS Safety Report 5426317-X (Version None)
Quarter: 2007Q3

REPORT INFORMATION
  Report Type: 
  Country: None (occurrence: None)
  Receive Date: 20070827
  Receipt Date: 20070823
  Transmission Date: 20080115
  Serious: Yes (Hospitalization)
  Sender: FDA-Public Use
  Company Number: US-AMGEN-US239803

PATIENT
  Sex: Female
  Weight: 136.2 kg

DRUGS (2)
  1. PROCRIT [Suspect]
     Indication: DIALYSIS
     Route: 065
  2. HECTORAL [Concomitant]

REACTIONS (3)
  - CARDIAC FAILURE CONGESTIVE [None]
  - FATIGUE [None]
  - HALLUCINATION [None]
